FAERS Safety Report 22523215 (Version 1)
Quarter: 2023Q2

REPORT INFORMATION
  Report Type: Spontaneous
  Country: DE (occurrence: DE)
  Receive Date: 20230606
  Receipt Date: 20230606
  Transmission Date: 20230721
  Serious: Yes (Other)
  Sender: FDA-Public Use
  Company Number: DE-JNJFOC-20230549896

PATIENT

DRUGS (15)
  1. DEXAMETHASONE [Suspect]
     Active Substance: DEXAMETHASONE
     Indication: Plasma cell myeloma refractory
     Dosage: UNK (REGIMEN:1: FIRST LINE TREATMENT)
     Route: 065
     Dates: start: 202112, end: 202212
  2. DEXAMETHASONE [Suspect]
     Active Substance: DEXAMETHASONE
     Dosage: UNK ((REGIMEN:2: FIRST LINE TREATMENT, THIRD LINE TREATMENT, PART OF VDT-PACE))
     Route: 065
     Dates: start: 202212, end: 202301
  3. DEXAMETHASONE [Suspect]
     Active Substance: DEXAMETHASONE
     Dosage: UNK
     Route: 065
     Dates: start: 20230324, end: 202304
  4. ETOPOSIDE [Suspect]
     Active Substance: ETOPOSIDE
     Indication: Plasma cell myeloma refractory
     Dosage: UNK
     Route: 065
     Dates: start: 20230324, end: 202304
  5. CISPLATIN [Suspect]
     Active Substance: CISPLATIN
     Indication: Plasma cell myeloma refractory
     Dosage: UNK (THIRD LINE TREATMENT, AS PART OF VDT-PACE)
     Route: 065
     Dates: start: 20230324, end: 202304
  6. CYCLOPHOSPHAMIDE [Suspect]
     Active Substance: CYCLOPHOSPHAMIDE
     Indication: Plasma cell myeloma refractory
     Dosage: UNK (THIRD LINE TREATMENT, REGIMEN AS A PART OF VDT-PACE)
     Route: 065
     Dates: start: 20230324, end: 202304
  7. LENALIDOMIDE [Suspect]
     Active Substance: LENALIDOMIDE
     Indication: Plasma cell myeloma refractory
     Dosage: UNK (SECOND LINE TREATMENT)
     Route: 065
     Dates: start: 202212, end: 202301
  8. DOXORUBICIN [Suspect]
     Active Substance: DOXORUBICIN
     Indication: Plasma cell myeloma refractory
     Dosage: UNK
     Route: 065
     Dates: start: 20230324
  9. THALIDOMIDE [Suspect]
     Active Substance: THALIDOMIDE
     Indication: Plasma cell myeloma refractory
     Dosage: UNK, (REGIMEN:1: FIRST LINE TREATMENT)
     Route: 065
     Dates: start: 202112, end: 202212
  10. THALIDOMIDE [Suspect]
     Active Substance: THALIDOMIDE
     Dosage: UNK, (REGIMEN:2: FIRST LINE TREATMENT, THIRD LINE TREATMENT, PART OF VDT-PACE)
     Route: 065
     Dates: start: 20230324
  11. VELCADE [Suspect]
     Active Substance: BORTEZOMIB
     Indication: Plasma cell myeloma refractory
     Dosage: UNK, (REGIMEN:1)
     Route: 065
     Dates: start: 202112, end: 202212
  12. VELCADE [Suspect]
     Active Substance: BORTEZOMIB
     Dosage: UNK, (REGIMEN:2: AS A PART OF VDT-PACE THIRD LINE TREATMENT)
     Route: 065
     Dates: start: 20230324, end: 202304
  13. CARFILZOMIB [Suspect]
     Active Substance: CARFILZOMIB
     Indication: Plasma cell myeloma refractory
     Dosage: UNK, (SECOND LINE TREATMENT)
     Route: 065
     Dates: start: 202212, end: 202301
  14. DARZALEX [Suspect]
     Active Substance: DARATUMUMAB
     Indication: Plasma cell myeloma refractory
     Dosage: UNK
     Route: 065
     Dates: start: 202112, end: 202212
  15. DARZALEX [Suspect]
     Active Substance: DARATUMUMAB
     Dosage: UNK
     Route: 065
     Dates: start: 20230324, end: 202304

REACTIONS (1)
  - Plasma cell myeloma [Unknown]
